FAERS Safety Report 23814283 (Version 4)
Quarter: 2024Q3

REPORT INFORMATION
  Report Type: Report from Study
  Country: US (occurrence: US)
  Receive Date: 20240503
  Receipt Date: 20240710
  Transmission Date: 20241017
  Serious: No
  Sender: ALEXION PHARMACEUTICALS
  Company Number: US-AstraZeneca-CH-00615888A

PATIENT
  Sex: Male

DRUGS (2)
  1. ULTOMIRIS [Suspect]
     Active Substance: RAVULIZUMAB-CWVZ
     Indication: Myasthenia gravis
     Dosage: UNK
     Route: 041
     Dates: start: 20230726
  2. PREDNISONE [Concomitant]
     Active Substance: PREDNISONE
     Indication: Product used for unknown indication
     Dosage: UNK, PRN
     Route: 065

REACTIONS (13)
  - Gait disturbance [Unknown]
  - Dyspnoea [Unknown]
  - Pain in extremity [Unknown]
  - Ocular discomfort [Unknown]
  - Balance disorder [Unknown]
  - Muscular weakness [Not Recovered/Not Resolved]
  - Eyelid ptosis [Not Recovered/Not Resolved]
  - Pain [Unknown]
  - Arthritis [Unknown]
  - Drug ineffective [Unknown]
  - Fatigue [Unknown]
  - Myalgia [Unknown]
  - Asthenia [Unknown]
